FAERS Safety Report 7207485-6 (Version None)
Quarter: 2010Q4

REPORT INFORMATION
  Report Type: 
  Country: None (occurrence: None)
  Receive Date: 20101221
  Receipt Date: 20101106
  Transmission Date: 20110411
  Serious: Yes (Other)
  Sender: FDA-Public Use
  Company Number: 2008S1000037

PATIENT
  Age: 52 Year
  Sex: Male
  Weight: 80 kg

DRUGS (18)
  1. CUBICIN [Suspect]
     Indication: ENDOCARDITIS STAPHYLOCOCCAL
     Dosage: 4.4 MG/KG; Q24H; IV
     Route: 042
     Dates: start: 20071219, end: 20071229
  2. FILGRASTIM (FILGRASTIM) [Suspect]
     Indication: GRANULOCYTE COUNT DECREASED
     Dates: start: 20071231, end: 20080101
  3. MARCUMAR [Concomitant]
  4. POTASSIUM [Concomitant]
  5. OXAZEPAM [Concomitant]
  6. BETA BLOCKING [Concomitant]
  7. AGENTS [Concomitant]
  8. GENTAMICIN [Concomitant]
  9. AMPICILLIN [Concomitant]
  10. PIRETANIDE [Concomitant]
  11. HYDROCORTISONE [Concomitant]
  12. METAMIZOLE [Concomitant]
  13. CEFTRIAXONE [Concomitant]
  14. FLUCLORACILLIN [Concomitant]
  15. INSULIN [Concomitant]
  16. TRAMADOL [Concomitant]
  17. VANCOMYCIN [Concomitant]
  18. RIFAMPICIN [Concomitant]

REACTIONS (10)
  - ABDOMINAL DISCOMFORT [None]
  - AGRANULOCYTOSIS [None]
  - HEART VALVE REPLACEMENT [None]
  - HYPERTENSION [None]
  - RASH [None]
  - RASH GENERALISED [None]
  - RENAL FAILURE [None]
  - SLEEP DISORDER [None]
  - WHITE BLOOD CELL COUNT DECREASED [None]
  - WHITE BLOOD CELL COUNT INCREASED [None]
